FAERS Safety Report 7791864-2 (Version None)
Quarter: 2011Q4

REPORT INFORMATION
  Report Type: 
  Country: None (occurrence: None)
  Receive Date: 20111003
  Receipt Date: 20110929
  Transmission Date: 20120403
  Serious: Yes (Other)
  Sender: FDA-Public Use
  Company Number: HU-JNJFOC-20110912255

PATIENT
  Age: 57 Year
  Sex: Male

DRUGS (4)
  1. ASPIRIN [Concomitant]
     Dates: end: 20110920
  2. XARELTO [Suspect]
     Indication: THROMBOSIS PROPHYLAXIS
     Route: 048
     Dates: start: 20110921, end: 20110924
  3. RAMIPRIL [Concomitant]
  4. NORMODIPINE [Concomitant]

REACTIONS (1)
  - DEEP VEIN THROMBOSIS [None]
